FAERS Safety Report 7588138-1 (Version None)
Quarter: 2011Q2

REPORT INFORMATION
  Report Type: 
  Country: None (occurrence: None)
  Receive Date: 20110627
  Receipt Date: 20110620
  Transmission Date: 20111010
  Serious: Yes (Death)
  Sender: FDA-Public Use
  Company Number: DSA_46808_2011

PATIENT
  Sex: Male

DRUGS (4)
  1. BACLOFEN [Concomitant]
  2. XENAZINE [Suspect]
     Indication: HUNTINGTON'S DISEASE
     Dosage: (12.5 MG TID ORAL, (12.5 MG QD ORAL), (UNSPECIFIED TITRATING DOSE ORAL)
     Route: 048
  3. ZOLOFT [Concomitant]
  4. SYNTHROID [Concomitant]

REACTIONS (3)
  - COMPLETED SUICIDE [None]
  - GUN SHOT WOUND [None]
  - DYSARTHRIA [None]
